FAERS Safety Report 12874457 (Version 2)
Quarter: 2016Q4

REPORT INFORMATION
  Report Type: Spontaneous
  Country: US (occurrence: US)
  Receive Date: 20161021
  Receipt Date: 20161128
  Transmission Date: 20170207
  Serious: No
  Sender: FDA-Public Use
  Company Number: US-ACTELION-A-US2016-144241

PATIENT
  Age: 61 Year
  Sex: Male

DRUGS (3)
  1. SILDENAFIL. [Concomitant]
     Active Substance: SILDENAFIL
  2. OPSUMIT [Suspect]
     Active Substance: MACITENTAN
     Indication: PULMONARY ARTERIAL HYPERTENSION
     Dosage: 10 MG, QD
     Route: 048
     Dates: start: 20161006
  3. DILTIAZEM. [Concomitant]
     Active Substance: DILTIAZEM

REACTIONS (4)
  - Upper respiratory tract infection [Not Recovered/Not Resolved]
  - Oropharyngeal pain [Unknown]
  - Cough [Unknown]
  - Nasal congestion [Unknown]

NARRATIVE: CASE EVENT DATE: 201610
